FAERS Safety Report 6988276-8 (Version None)
Quarter: 2010Q3

REPORT INFORMATION
  Report Type: 
  Country: None (occurrence: None)
  Receive Date: 20100914
  Receipt Date: 20100809
  Transmission Date: 20110219
  Serious: Yes (Other)
  Sender: FDA-Public Use
  Company Number: 20109227

PATIENT
  Age: 56 Year
  Sex: Male

DRUGS (1)
  1. LIORESAL [Suspect]
     Indication: MUSCLE SPASTICITY
     Dosage: UNK MCG DAILY INTRATHECAL
     Route: 037

REACTIONS (6)
  - DEVICE OCCLUSION [None]
  - DEVICE POWER SOURCE ISSUE [None]
  - DRUG WITHDRAWAL SYNDROME [None]
  - LYMPHOEDEMA [None]
  - MUSCLE SPASTICITY [None]
  - PAIN IN EXTREMITY [None]
